FAERS Safety Report 7874180-X (Version None)
Quarter: 2011Q4

REPORT INFORMATION
  Report Type: 
  Country: None (occurrence: None)
  Receive Date: 20111017
  Receipt Date: 20101129
  Transmission Date: 20120403
  Serious: Yes (Hospitalization)
  Sender: FDA-Public Use
  Company Number: 2010S1000394(0)

PATIENT
  Age: 70 Year
  Sex: Male

DRUGS (8)
  1. VASORETIC (VASERETIC) [Concomitant]
  2. SIMVASTATIN [Concomitant]
  3. BETAPACE [Concomitant]
  4. LOVENOX [Concomitant]
  5. MULTI-VITAMIN [Concomitant]
  6. COUMADIN [Concomitant]
  7. DARVOCET-N 100 [Suspect]
     Indication: PAIN
     Dosage: (2 IN 1 D), ORAL
     Route: 048
     Dates: start: 20080101, end: 20101122
  8. NAPROSYN [Concomitant]

REACTIONS (1)
  - ATRIAL FLUTTER [None]
